FAERS Safety Report 18987245 (Version 1)
Quarter: 2021Q1

REPORT INFORMATION
  Report Type: Spontaneous
  Country: DE (occurrence: DE)
  Receive Date: 20210309
  Receipt Date: 20210309
  Transmission Date: 20210420
  Serious: Yes (Hospitalization)
  Sender: FDA-Public Use
  Company Number: NVSC2021DE047301

PATIENT
  Age: 14 Year
  Sex: Male
  Weight: 46 kg

DRUGS (1)
  1. AMITRIPTYLINE [Suspect]
     Active Substance: AMITRIPTYLINE
     Indication: PRODUCT USED FOR UNKNOWN INDICATION
     Dosage: 25 MG EVERY 5 TOTAL
     Route: 048

REACTIONS (5)
  - Somnolence [Recovered/Resolved]
  - Wrong product administered [Recovered/Resolved]
  - Loss of consciousness [Recovered/Resolved]
  - Overdose [Recovered/Resolved]
  - Toxicity to various agents [Recovered/Resolved]

NARRATIVE: CASE EVENT DATE: 20200605
